APPROVED DRUG PRODUCT: MINIPRESS XL
Active Ingredient: PRAZOSIN HYDROCHLORIDE
Strength: 5MG
Dosage Form/Route: TABLET, EXTENDED RELEASE;ORAL
Application: N019775 | Product #002
Applicant: PFIZER INC
Approved: Jan 29, 1992 | RLD: No | RS: No | Type: DISCN